FAERS Safety Report 5634400-9 (Version None)
Quarter: 2008Q1

REPORT INFORMATION
  Report Type: 
  Country: None (occurrence: None)
  Receive Date: 20080222
  Receipt Date: 20080212
  Transmission Date: 20080703
  Serious: Yes (Other)
  Sender: FDA-Public Use
  Company Number: DE-ELI_LILLY_AND_COMPANY-DE200802002640

PATIENT
  Sex: Female

DRUGS (5)
  1. FORTEO [Suspect]
     Indication: OSTEOPOROSIS
     Dosage: UNK, DAILY (1/D)
     Route: 058
     Dates: start: 20070117
  2. ARCOXIA [Concomitant]
     Dosage: UNK, UNKNOWN
  3. VOLTAREN /00372301/ [Concomitant]
     Dosage: UNK, UNKNOWN
  4. CALCIUM [Concomitant]
     Dosage: UNK, UNKNOWN
     Route: 048
  5. ENZYME INHIBITORS [Concomitant]
     Dosage: UNK, UNKNOWN

REACTIONS (2)
  - NAUSEA [None]
  - WEIGHT DECREASED [None]
